FAERS Safety Report 10418911 (Version 1)
Quarter: 2014Q2

REPORT INFORMATION
  Report Type: Spontaneous
  Country: US (occurrence: None)
  Receive Date: 20140617
  Receipt Date: 20140617
  Transmission Date: 20141212
  Serious: Yes (Other)
  Sender: FDA-Public Use
  Company Number: 1260486

PATIENT
  Sex: Female

DRUGS (1)
  1. ACTEMRA (TOCILIZUMAB) 200 MG VIAL GENENTECH [Suspect]
     Indication: RHEUMATOID ARTHRITIS
     Dosage: UNKNOWN

REACTIONS (3)
  - Tuberculosis [None]
  - Anaemia [None]
  - Gastric haemorrhage [None]
